FAERS Safety Report 7642122-8 (Version None)
Quarter: 2011Q3

REPORT INFORMATION
  Report Type: 
  Country: None (occurrence: None)
  Receive Date: 20110728
  Receipt Date: 20110725
  Transmission Date: 20111222
  Serious: Yes (Death, Other)
  Sender: FDA-Public Use
  Company Number: US-BRISTOL-MYERS SQUIBB COMPANY-15921901

PATIENT
  Age: 90 Year
  Sex: Male

DRUGS (3)
  1. ABILIFY [Suspect]
  2. SYNTHROID [Concomitant]
  3. HALDOL [Concomitant]

REACTIONS (2)
  - DELUSION [None]
  - PROSTATE CANCER [None]
